FAERS Safety Report 25229697 (Version 1)
Quarter: 2025Q2

REPORT INFORMATION
  Report Type: Spontaneous
  Country: CN (occurrence: CN)
  Receive Date: 20250423
  Receipt Date: 20250423
  Transmission Date: 20250717
  Serious: Yes (Death, Life-Threatening, Hospitalization)
  Sender: ACCORD
  Company Number: CN-MLMSERVICE-20250407-PI473354-00082-1

PATIENT
  Age: 74 Year
  Sex: Male

DRUGS (8)
  1. CARBOPLATIN [Suspect]
     Active Substance: CARBOPLATIN
     Indication: Small cell lung cancer metastatic
     Dosage: PERSONALIZED DOSE-REDUCED EC CHEMOTHERAPY (DAY 1)
  2. ETOPOSIDE [Suspect]
     Active Substance: ETOPOSIDE
     Indication: Small cell lung cancer metastatic
     Dosage: PERSONALIZED DOSE-REDUCED EC CHEMOTHERAPY (DAYS 1-3)
  3. CARBOPLATIN [Suspect]
     Active Substance: CARBOPLATIN
     Indication: Metastases to liver
     Dosage: PERSONALIZED DOSE-REDUCED EC CHEMOTHERAPY (DAY 1)
  4. ETOPOSIDE [Suspect]
     Active Substance: ETOPOSIDE
     Indication: Metastases to bone
     Dosage: PERSONALIZED DOSE-REDUCED EC CHEMOTHERAPY (DAYS 1-3)
  5. ETOPOSIDE [Suspect]
     Active Substance: ETOPOSIDE
     Indication: Cancer with a high tumour mutational burden
     Dosage: PERSONALIZED DOSE-REDUCED EC CHEMOTHERAPY (DAYS 1-3)
  6. CARBOPLATIN [Suspect]
     Active Substance: CARBOPLATIN
     Indication: Metastases to bone
     Dosage: PERSONALIZED DOSE-REDUCED EC CHEMOTHERAPY (DAY 1)
  7. CARBOPLATIN [Suspect]
     Active Substance: CARBOPLATIN
     Indication: Cancer with a high tumour mutational burden
     Dosage: PERSONALIZED DOSE-REDUCED EC CHEMOTHERAPY (DAY 1)
  8. ETOPOSIDE [Suspect]
     Active Substance: ETOPOSIDE
     Indication: Metastases to liver
     Dosage: PERSONALIZED DOSE-REDUCED EC CHEMOTHERAPY (DAYS 1-3)

REACTIONS (6)
  - Tumour lysis syndrome [Fatal]
  - Renal colic [Unknown]
  - Condition aggravated [Unknown]
  - Renal failure [Unknown]
  - Infection [Unknown]
  - Hepatic function abnormal [Unknown]
